FAERS Safety Report 24071695 (Version 1)
Quarter: 2024Q3

REPORT INFORMATION
  Report Type: Report from Study
  Country: CA (occurrence: CA)
  Receive Date: 20240710
  Receipt Date: 20240710
  Transmission Date: 20241017
  Serious: No
  Sender: ROCHE
  Company Number: CA-ROCHE-3529009

PATIENT
  Sex: Female

DRUGS (11)
  1. EVRYSDI [Suspect]
     Active Substance: RISDIPLAM
     Indication: Spinal muscular atrophy
     Route: 048
     Dates: start: 20201207
  2. EVRYSDI [Suspect]
     Active Substance: RISDIPLAM
     Route: 048
     Dates: start: 2021, end: 2022
  3. EVRYSDI [Suspect]
     Active Substance: RISDIPLAM
     Route: 048
  4. CALCIUM [Concomitant]
     Active Substance: CALCIUM
  5. CHLORAL HYDRATE [Concomitant]
     Active Substance: CHLORAL HYDRATE
  6. GABAPENTIN [Concomitant]
     Active Substance: GABAPENTIN
  7. MELATONIN [Concomitant]
     Active Substance: MELATONIN
  8. NAPROXEN [Concomitant]
     Active Substance: NAPROXEN
  9. SELENIUM [Concomitant]
     Active Substance: SELENIUM
  10. TYLENOL [Concomitant]
     Active Substance: ACETAMINOPHEN
  11. ZINC [Concomitant]
     Active Substance: ZINC

REACTIONS (4)
  - Blood zinc decreased [Unknown]
  - Blood selenium decreased [Unknown]
  - Blood calcium decreased [Unknown]
  - Vitamin D decreased [Unknown]
